FAERS Safety Report 16009795 (Version 1)
Quarter: 2019Q1

REPORT INFORMATION
  Report Type: Spontaneous
  Country: US (occurrence: US)
  Receive Date: 20190227
  Receipt Date: 20190227
  Transmission Date: 20190418
  Serious: No
  Sender: FDA-Public Use
  Company Number: US-SA-2019SA054191

PATIENT
  Age: 58 Year
  Sex: Female

DRUGS (1)
  1. PRALUENT [Suspect]
     Active Substance: ALIROCUMAB
     Indication: BLOOD CHOLESTEROL
     Dosage: 150 MG
     Route: 058
     Dates: start: 2017

REACTIONS (4)
  - Skin infection [Not Recovered/Not Resolved]
  - Injection site swelling [Unknown]
  - Injection site erythema [Unknown]
  - Injection site bruising [Recovered/Resolved]

NARRATIVE: CASE EVENT DATE: 201806
